FAERS Safety Report 20125221 (Version 1)
Quarter: 2021Q4

REPORT INFORMATION
  Report Type: Spontaneous
  Country: US (occurrence: None)
  Receive Date: 20211127
  Receipt Date: 20211127
  Transmission Date: 20220303
  Serious: No
  Sender: FDA-Public Use
  Company Number: None

PATIENT
  Age: 43 Year
  Sex: Female
  Weight: 77.85 kg

DRUGS (3)
  1. EYSUVIS [Suspect]
     Active Substance: LOTEPREDNOL ETABONATE
     Indication: Dry eye
     Dosage: OTHER QUANTITY : 1 DROP(S);?FREQUENCY : DAILY;?
     Route: 047
     Dates: start: 20211104, end: 20211126
  2. SMARTY PANTS WOMEN^S MULTIVITAMIN [Concomitant]
  3. IRON [Concomitant]
     Active Substance: IRON

REACTIONS (2)
  - Muscle spasms [None]
  - Muscle spasms [None]

NARRATIVE: CASE EVENT DATE: 20211126
